FAERS Safety Report 5920062-X (Version None)
Quarter: 2008Q4

REPORT INFORMATION
  Report Type: 
  Country: None (occurrence: None)
  Receive Date: 20081014
  Receipt Date: 20081006
  Transmission Date: 20090506
  Serious: Yes (Hospitalization, Other)
  Sender: FDA-Public Use
  Company Number: 2008S1000258

PATIENT
  Age: 69 Year
  Sex: Female
  Weight: 88 kg

DRUGS (8)
  1. CUBICIN [Suspect]
     Indication: STAPHYLOCOCCAL SEPSIS
     Dosage: 490 MG;Q24H; IV
     Route: 042
     Dates: start: 20080508, end: 20080715
  2. VANCOMYCIN HYDROCHLORIDE [Concomitant]
  3. ZOSYN [Concomitant]
  4. ROCEPHIN /00672202/ [Concomitant]
  5. CIPROFLOXACIN [Concomitant]
  6. PLAVIX [Concomitant]
  7. COUMADIN [Concomitant]
  8. STEROIDS [Concomitant]

REACTIONS (9)
  - ARTHRITIS BACTERIAL [None]
  - DISEASE PROGRESSION [None]
  - ENDOCARDITIS [None]
  - MULTI-ORGAN FAILURE [None]
  - MYOPERICARDITIS [None]
  - PERICARDITIS [None]
  - RENAL FAILURE [None]
  - STAPHYLOCOCCAL BACTERAEMIA [None]
  - STAPHYLOCOCCAL SEPSIS [None]
